FAERS Safety Report 4851693-6 (Version None)
Quarter: 2005Q4

REPORT INFORMATION
  Report Type: 
  Country: None (occurrence: None)
  Receive Date: 20051209
  Receipt Date: 20051125
  Transmission Date: 20060501
  Serious: Yes (Disabling, Other)
  Sender: FDA-Public Use
  Company Number: 12987

PATIENT
  Age: 58 Year
  Sex: Female
  Weight: 58 kg

DRUGS (3)
  1. NOVOPLATINUM [Suspect]
     Indication: BREAST CANCER
     Dosage: 336 MG DAILY IV
     Route: 042
     Dates: start: 20051020, end: 20051020
  2. ONDANSETRON [Concomitant]
  3. VINDESINE [Concomitant]

REACTIONS (9)
  - ABDOMINAL PAIN [None]
  - ERYTHEMA [None]
  - GASTRIC HAEMORRHAGE [None]
  - HYPERHIDROSIS [None]
  - HYPERTENSIVE CRISIS [None]
  - INFUSION RELATED REACTION [None]
  - MALAISE [None]
  - NAUSEA [None]
  - VOMITING [None]
